FAERS Safety Report 6231338-3 (Version None)
Quarter: 2009Q2

REPORT INFORMATION
  Report Type: 
  Country: None (occurrence: None)
  Receive Date: 20090616
  Receipt Date: 20080609
  Transmission Date: 20091009
  Serious: Yes (Other)
  Sender: FDA-Public Use
  Company Number: US-JNJCH-2009016050

PATIENT
  Age: 51 Year
  Sex: Male
  Weight: 79.4 kg

DRUGS (3)
  1. BENADRYL [Suspect]
     Indication: FOOD ALLERGY
     Dosage: TEXT:1 TABLET - ONE OR TWO DAILY
     Route: 048
  2. VITAMIN B-COMPLEX [Concomitant]
     Indication: VITAMIN SUPPLEMENTATION
     Dosage: TEXT:1 GELCAP DAILY
     Route: 065
  3. FISH OIL [Concomitant]
     Indication: VITAMIN SUPPLEMENTATION
     Dosage: TEXT:2 GELCAPS DAILY
     Route: 065

REACTIONS (3)
  - MENTAL IMPAIRMENT [None]
  - OFF LABEL USE [None]
  - VISION BLURRED [None]
